FAERS Safety Report 11364276 (Version 1)
Quarter: 2015Q3

REPORT INFORMATION
  Report Type: Spontaneous
  Country: US (occurrence: None)
  Receive Date: 20150810
  Receipt Date: 20150810
  Transmission Date: 20151125
  Serious: Yes (Hospitalization)
  Sender: FDA-Public Use
  Company Number: None

PATIENT
  Sex: Male

DRUGS (2)
  1. SPRYCEL [Suspect]
     Active Substance: DASATINIB
     Indication: NEUTROPENIA
     Dosage: 140MG 1 TABLET QD ORAL
     Route: 048
     Dates: start: 20150519
  2. SPRYCEL [Suspect]
     Active Substance: DASATINIB
     Indication: ACUTE LYMPHOCYTIC LEUKAEMIA
     Dosage: 140MG 1 TABLET QD ORAL
     Route: 048
     Dates: start: 20150519

REACTIONS (1)
  - Hospitalisation [None]
